APPROVED DRUG PRODUCT: ETHMOZINE
Active Ingredient: MORICIZINE HYDROCHLORIDE
Strength: 300MG
Dosage Form/Route: TABLET;ORAL
Application: N019753 | Product #003
Applicant: SHIRE DEVELOPMENT INC
Approved: Jun 19, 1990 | RLD: No | RS: No | Type: DISCN